FAERS Safety Report 8225873 (Version 2)
Quarter: 2013Q2

REPORT INFORMATION
  Report Type: Spontaneous
  Country: US (occurrence: None)
  Receive Date: 20111014
  Receipt Date: 20121012
  Transmission Date: 20140414
  Serious: Yes (Other)
  Sender: FDA-Public Use
  Company Number: 1000016212

PATIENT
  Sex: Female

DRUGS (3)
  1. LEXAPRO [Suspect]
  2. ZOLOFT [Suspect]
     Dates: start: 2002
  3. WELLBUTRIN [Suspect]

REACTIONS (1)
  - SEROTONIN SYNDROME [None]
